FAERS Safety Report 24868401 (Version 1)
Quarter: 2025Q1

REPORT INFORMATION
  Report Type: Spontaneous
  Country: US (occurrence: None)
  Receive Date: 20250120
  Receipt Date: 20250120
  Transmission Date: 20250408
  Serious: No
  Sender: FDA-CTU
  Company Number: None

PATIENT
  Age: 25 Year
  Sex: Female

DRUGS (1)
  1. ZURZUVAE [Suspect]
     Active Substance: ZURANOLONE
     Indication: Perinatal depression
     Dosage: 40 MG AT BEDTIME ORAL ?
     Route: 048
     Dates: start: 20250102

REACTIONS (2)
  - Somnolence [None]
  - Intentional product use issue [None]

NARRATIVE: CASE EVENT DATE: 20250108
